FAERS Safety Report 5090138-0 (Version None)
Quarter: 2006Q3

REPORT INFORMATION
  Report Type: 
  Country: None (occurrence: None)
  Receive Date: 20060828
  Receipt Date: 20060816
  Transmission Date: 20061208
  Serious: Yes (Hospitalization)
  Sender: FDA-Public Use
  Company Number: CA-ROCHE-459837

PATIENT
  Age: 21 Year
  Sex: Female

DRUGS (3)
  1. ACCUTANE [Suspect]
     Indication: ACNE
     Route: 048
     Dates: start: 20051121, end: 20051205
  2. ACCUTANE [Suspect]
     Route: 048
     Dates: start: 20051206, end: 20060515
  3. ACCUTANE [Suspect]
     Route: 048
     Dates: start: 20060610, end: 20060815

REACTIONS (1)
  - VIRAL UPPER RESPIRATORY TRACT INFECTION [None]
